FAERS Safety Report 25664235 (Version 1)
Quarter: 2025Q3

REPORT INFORMATION
  Report Type: Report from Study
  Country: US (occurrence: US)
  Receive Date: 20250811
  Receipt Date: 20250811
  Transmission Date: 20251020
  Serious: No
  Sender: SUNOVION
  Company Number: US-SUMITOMO PHARMA SWITZERLAND GMBH-2025SPA006584

PATIENT
  Age: 66 Year
  Sex: Male

DRUGS (19)
  1. ORGOVYX [Suspect]
     Active Substance: RELUGOLIX
     Indication: Prostate cancer
     Dosage: 120 MG, QD
     Route: 048
     Dates: start: 20250520
  2. AMLODIPINE BESYLATE [Concomitant]
     Active Substance: AMLODIPINE BESYLATE
  3. ATORVASTATIN [Concomitant]
     Active Substance: ATORVASTATIN
  4. COLCHICINE [Concomitant]
     Active Substance: COLCHICINE
  5. FISH OIL [Concomitant]
     Active Substance: FISH OIL
  6. ESCITALOPRAM [Concomitant]
     Active Substance: ESCITALOPRAM OXALATE
  7. FAMOTIDINE [Concomitant]
     Active Substance: FAMOTIDINE
  8. FARXIGA [Concomitant]
     Active Substance: DAPAGLIFLOZIN PROPANEDIOL
  9. LOSARTAN [Concomitant]
     Active Substance: LOSARTAN
  10. METAMUCIL [Concomitant]
     Active Substance: PLANTAGO SEED
  11. METHYLPREDNISOLONE [Concomitant]
     Active Substance: METHYLPREDNISOLONE
  12. METOPROLOL SUCCINATE [Concomitant]
     Active Substance: METOPROLOL SUCCINATE
  13. SILDENAFIL [Concomitant]
     Active Substance: SILDENAFIL
  14. VITAMIN D [Concomitant]
     Active Substance: VITAMIN D NOS
  15. YONSA [Concomitant]
     Active Substance: ABIRATERONE ACETATE
  16. LOKELMA [Concomitant]
     Active Substance: SODIUM ZIRCONIUM CYCLOSILICATE
  17. MEGESTROL ACETATE [Concomitant]
     Active Substance: MEGESTROL ACETATE
  18. VITAMIN B12 [Concomitant]
     Active Substance: CYANOCOBALAMIN
  19. VITAMIN C [Concomitant]
     Active Substance: ASCORBIC ACID

REACTIONS (5)
  - Vomiting [Unknown]
  - Nausea [Unknown]
  - Hot flush [Unknown]
  - Myalgia [Unknown]
  - Incorrect dose administered [Unknown]
